FAERS Safety Report 23551710 (Version 1)
Quarter: 2024Q1

REPORT INFORMATION
  Report Type: Other
  Country: IN (occurrence: None)
  Receive Date: 20240222
  Receipt Date: 20240222
  Transmission Date: 20240410
  Serious: Yes (Other)
  Sender: FDA-Public Use
  Company Number: IN-Umedica-000003

PATIENT
  Age: 18 Year
  Sex: Female

DRUGS (1)
  1. DICLOFENAC POTASSIUM [Suspect]
     Active Substance: DICLOFENAC POTASSIUM
     Indication: Toothache
     Dosage: INJECTION
     Route: 030

REACTIONS (2)
  - Embolia cutis medicamentosa [Recovered/Resolved]
  - Off label use [Unknown]
